FAERS Safety Report 12126373 (Version 1)
Quarter: 2016Q1

REPORT INFORMATION
  Report Type: Other
  Country: IN (occurrence: IN)
  Receive Date: 20160229
  Receipt Date: 20160229
  Transmission Date: 20160526
  Serious: Yes (Other)
  Sender: FDA-Public Use
  Company Number: IN-LUPIN PHARMACEUTICALS INC.-2016-00776

PATIENT
  Age: 72 Year
  Sex: Female

DRUGS (4)
  1. QUETIAPINE [Suspect]
     Active Substance: QUETIAPINE
     Indication: SLEEP DISORDER
     Dosage: 25 MG AT BED TIME
     Route: 065
  2. WARFARIN [Interacting]
     Active Substance: WARFARIN
     Indication: DEEP VEIN THROMBOSIS
     Route: 065
  3. QUETIAPINE [Interacting]
     Active Substance: QUETIAPINE
     Indication: RESTLESSNESS
  4. QUETIAPINE [Interacting]
     Active Substance: QUETIAPINE
     Indication: HALLUCINATION, VISUAL

REACTIONS (2)
  - Drug interaction [Unknown]
  - Gastrointestinal haemorrhage [Recovered/Resolved]
